FAERS Safety Report 15901838 (Version 3)
Quarter: 2019Q1

REPORT INFORMATION
  Report Type: Report from Study
  Country: US (occurrence: US)
  Receive Date: 20190201
  Receipt Date: 20190215
  Transmission Date: 20190417
  Serious: Yes (Hospitalization, Other)
  Sender: FDA-Public Use
  Company Number: US-TAKEDA-2019TUS004018

PATIENT
  Age: 73 Year
  Sex: Female
  Weight: 81.6 kg

DRUGS (3)
  1. BORTEZOMIB. [Suspect]
     Active Substance: BORTEZOMIB
     Indication: PLASMA CELL MYELOMA
     Dosage: 1.3 MILLIGRAM/SQ. METER
     Route: 058
     Dates: start: 20160809
  2. BORTEZOMIB. [Suspect]
     Active Substance: BORTEZOMIB
     Dosage: 1.0 MILLIGRAM/SQ. METER
     Route: 058
  3. LENALIDOMIDE [Suspect]
     Active Substance: LENALIDOMIDE
     Indication: PLASMA CELL MYELOMA
     Dosage: 10 MILLIGRAM
     Route: 048
     Dates: start: 20160809

REACTIONS (11)
  - Gastrointestinal haemorrhage [Unknown]
  - Skull fracture [Unknown]
  - Skin laceration [Unknown]
  - Subarachnoid haemorrhage [Unknown]
  - Sternal fracture [Unknown]
  - Road traffic accident [Unknown]
  - Thoracic vertebral fracture [Unknown]
  - Spinal fracture [Unknown]
  - Pancreatitis [Recovering/Resolving]
  - Emphysema [Unknown]
  - Syncope [Unknown]

NARRATIVE: CASE EVENT DATE: 20190123
